FAERS Safety Report 21480053 (Version 1)
Quarter: 2022Q4

REPORT INFORMATION
  Report Type: Spontaneous
  Country: US (occurrence: None)
  Receive Date: 20221019
  Receipt Date: 20221019
  Transmission Date: 20230113
  Serious: No
  Sender: FDA-Public Use
  Company Number: None

PATIENT
  Sex: Female

DRUGS (19)
  1. AMBRISENTAN [Suspect]
     Active Substance: AMBRISENTAN
     Indication: Pulmonary arterial hypertension
     Dosage: FREQUENCY : DAILY;?
     Route: 048
  2. FUROSEMIDE [Concomitant]
     Active Substance: FUROSEMIDE
  3. VITAMIN D2 [Concomitant]
     Active Substance: ERGOCALCIFEROL
  4. ASPIRIN [Concomitant]
     Active Substance: ASPIRIN
  5. ADCIRCA [Concomitant]
     Active Substance: TADALAFIL
  6. KLOR-CON M10 [Concomitant]
     Active Substance: POTASSIUM CHLORIDE
  7. VITAMIN D3 [Concomitant]
     Active Substance: CHOLECALCIFEROL
  8. GABAPENTIN [Concomitant]
     Active Substance: GABAPENTIN
  9. PREDNISONE [Concomitant]
     Active Substance: PREDNISONE
  10. LORATADINE [Concomitant]
     Active Substance: LORATADINE
  11. PLAQUENIL [Concomitant]
     Active Substance: HYDROXYCHLOROQUINE SULFATE
  12. MAGNESIUM [Concomitant]
     Active Substance: MAGNESIUM
  13. ALBUTEROL [Concomitant]
     Active Substance: ALBUTEROL
  14. OMEPRAZOLE [Concomitant]
     Active Substance: OMEPRAZOLE
  15. REVLIMID [Concomitant]
     Active Substance: LENALIDOMIDE
  16. HERBALS\TURMERIC [Concomitant]
     Active Substance: HERBALS\TURMERIC
  17. BREO ELLIPTA [Concomitant]
     Active Substance: FLUTICASONE FUROATE\VILANTEROL TRIFENATATE
  18. ATROVENT [Concomitant]
     Active Substance: IPRATROPIUM BROMIDE
  19. TADALAFIL [Concomitant]
     Active Substance: TADALAFIL

REACTIONS (2)
  - Therapy interrupted [None]
  - Anaemia [None]
